FAERS Safety Report 10129034 (Version 1)
Quarter: 2014Q2

REPORT INFORMATION
  Report Type: Spontaneous
  Country: US (occurrence: US)
  Receive Date: 20140428
  Receipt Date: 20140428
  Transmission Date: 20141212
  Serious: No
  Sender: FDA-Public Use
  Company Number: US-B.I. PHARMACEUTICALS,INC./RIDGEFIELD-2014-BI-17781BP

PATIENT
  Age: 64 Year
  Sex: Male

DRUGS (8)
  1. SPIRIVA [Suspect]
     Indication: CHRONIC OBSTRUCTIVE PULMONARY DISEASE
     Dosage: 18 MCG
     Route: 055
     Dates: start: 2012
  2. SPIRIVA [Suspect]
     Dosage: 18 MCG
     Route: 048
  3. PANTOPRAZOLE [Concomitant]
     Dosage: 40 MG
     Route: 048
  4. NICODERM PATCH [Concomitant]
     Indication: EX-TOBACCO USER
     Dosage: FORMULATION: PATCH
     Route: 061
  5. LYRICA [Concomitant]
     Indication: NEURALGIA
     Dosage: 150 MG
     Route: 048
  6. BUPROBAN [Concomitant]
     Indication: EX-TOBACCO USER
     Route: 048
  7. WARFARIN [Concomitant]
     Indication: THROMBOSIS
     Dosage: 3 MG
     Route: 048
  8. WARFARIN [Concomitant]
     Indication: PROPHYLAXIS

REACTIONS (4)
  - Arthralgia [Not Recovered/Not Resolved]
  - Poor peripheral circulation [Not Recovered/Not Resolved]
  - Tremor [Not Recovered/Not Resolved]
  - Incorrect route of drug administration [Recovered/Resolved]
